FAERS Safety Report 4501241-5 (Version None)
Quarter: 2004Q3

REPORT INFORMATION
  Report Type: 
  Country: None (occurrence: None)
  Receive Date: 20040927
  Receipt Date: 20040817
  Transmission Date: 20050211
  Serious: No
  Sender: FDA-Public Use
  Company Number: USA040875785

PATIENT
  Age: 70 Year
  Sex: Female
  Weight: 68 kg

DRUGS (4)
  1. STRATTERA [Suspect]
     Indication: ATTENTION DEFICIT/HYPERACTIVITY DISORDER
     Dosage: 40 MG DAY
     Dates: start: 20040701
  2. RITALIN [Concomitant]
  3. CITRUCEL (METHYLCELLULOSE) [Concomitant]
  4. STOOL SOFTENER (DOCUSATE SODIUM) [Concomitant]

REACTIONS (6)
  - ABDOMINAL PAIN [None]
  - CONSTIPATION [None]
  - DYSURIA [None]
  - SEASONAL ALLERGY [None]
  - SOMNOLENCE [None]
  - WEIGHT FLUCTUATION [None]
